FAERS Safety Report 7392339-5 (Version None)
Quarter: 2011Q2

REPORT INFORMATION
  Report Type: 
  Country: None (occurrence: None)
  Receive Date: 20110404
  Receipt Date: 20110331
  Transmission Date: 20111010
  Serious: Yes (Death)
  Sender: FDA-Public Use
  Company Number: BR-B.I. PHARMACEUTICALS,INC./RIDGEFIELD-2011-BR-00330BR

PATIENT
  Age: 58 Year
  Sex: Male

DRUGS (3)
  1. MICARDIS HCT [Suspect]
     Indication: BLOOD PRESSURE INCREASED
     Dosage: NR
  2. CAPOTEN [Concomitant]
     Dosage: NR
  3. PROPRANOLOL HYDROCHLORIDE [Concomitant]
     Dosage: NR

REACTIONS (1)
  - ROAD TRAFFIC ACCIDENT [None]
